FAERS Safety Report 23686603 (Version 2)
Quarter: 2025Q3

REPORT INFORMATION
  Report Type: Report from Study
  Country: JP (occurrence: JP)
  Receive Date: 20240329
  Receipt Date: 20250702
  Transmission Date: 20251021
  Serious: Yes (Death, Hospitalization, Other)
  Sender: NOVARTIS
  Company Number: JP-002147023-NVSJ2021JP017565

PATIENT
  Age: 21 Year
  Sex: Male
  Weight: 62.8 kg

DRUGS (3)
  1. KYMRIAH [Suspect]
     Active Substance: TISAGENLECLEUCEL
     Indication: Acute lymphocytic leukaemia recurrent
     Route: 041
     Dates: start: 20211008, end: 20211008
  2. FLUDARABINE PHOSPHATE [Concomitant]
     Active Substance: FLUDARABINE PHOSPHATE
     Indication: Lymphodepletion
     Route: 065
     Dates: start: 20211003
  3. CYCLOPHOSPHAMIDE [Concomitant]
     Active Substance: CYCLOPHOSPHAMIDE
     Indication: Lymphodepletion
     Route: 065
     Dates: start: 20211003

REACTIONS (13)
  - Acute lymphocytic leukaemia recurrent [Fatal]
  - Malignant neoplasm progression [Fatal]
  - Cytokine release syndrome [Recovered/Resolved]
  - Pyrexia [Unknown]
  - Hypotension [Recovering/Resolving]
  - Pericardial effusion [Recovered/Resolved]
  - Hypoxia [Unknown]
  - Cardiac tamponade [Unknown]
  - Tumour lysis syndrome [Recovered/Resolved]
  - Platelet count decreased [Unknown]
  - White blood cell count decreased [Unknown]
  - Neutrophil count decreased [Unknown]
  - Lymphocyte count decreased [Unknown]

NARRATIVE: CASE EVENT DATE: 20211011
